FAERS Safety Report 6107888-7 (Version None)
Quarter: 2009Q1

REPORT INFORMATION
  Report Type: 
  Country: None (occurrence: None)
  Receive Date: 20090309
  Receipt Date: 20090304
  Transmission Date: 20090719
  Serious: Yes (Hospitalization)
  Sender: FDA-Public Use
  Company Number: US-MERCK-0901USA04184

PATIENT
  Age: 61 Year
  Sex: Female
  Weight: 70 kg

DRUGS (3)
  1. FOSAMAX [Suspect]
     Indication: OSTEOPOROSIS
     Route: 048
     Dates: start: 19980101, end: 20010101
  2. FOSAMAX [Suspect]
     Route: 048
     Dates: start: 20060101, end: 20080101
  3. ESTROGENS (UNSPECIFIED) [Concomitant]
     Route: 065

REACTIONS (3)
  - DRUG ADMINISTRATION ERROR [None]
  - FEMUR FRACTURE [None]
  - HIP FRACTURE [None]
